FAERS Safety Report 19761672 (Version 1)
Quarter: 2021Q3

REPORT INFORMATION
  Report Type: Report from Study
  Country: FR (occurrence: FR)
  Receive Date: 20210827
  Receipt Date: 20210827
  Transmission Date: 20211014
  Serious: Yes (Other)
  Sender: FDA-Public Use
  Company Number: FR-EVEREST MEDICINES II (HK) LIMITED-2021-0544796

PATIENT
  Age: 48 Year
  Sex: Female

DRUGS (1)
  1. SACITUZUMAB GOVITECAN. [Suspect]
     Active Substance: SACITUZUMAB GOVITECAN
     Indication: TRIPLE NEGATIVE BREAST CANCER
     Dosage: UNK
     Route: 065
     Dates: start: 202103, end: 20210716

REACTIONS (1)
  - Neoplasm progression [Unknown]

NARRATIVE: CASE EVENT DATE: 202108
